FAERS Safety Report 6954383-9 (Version None)
Quarter: 2010Q3

REPORT INFORMATION
  Report Type: 
  Country: None (occurrence: None)
  Receive Date: 20100829
  Receipt Date: 20100713
  Transmission Date: 20110219
  Serious: No
  Sender: FDA-Public Use
  Company Number: US-ABBOTT-10P-163-0658269-00

PATIENT
  Sex: Male

DRUGS (7)
  1. NIASPAN [Suspect]
     Indication: BLOOD CHOLESTEROL INCREASED
     Dosage: INCREASED BY 500 MG/WK UNTIL REACHED 2000 MG/DAY
     Dates: start: 20100301
  2. NIASPAN [Suspect]
  3. NIASPAN [Suspect]
  4. NIASPAN [Suspect]
     Dates: end: 20100501
  5. METFORMIN [Concomitant]
     Indication: TYPE 2 DIABETES MELLITUS
  6. COREG CR [Concomitant]
     Indication: PRODUCT USED FOR UNKNOWN INDICATION
  7. NAPROSYN [Concomitant]
     Indication: PRODUCT USED FOR UNKNOWN INDICATION

REACTIONS (2)
  - BLOOD GLUCOSE INCREASED [None]
  - PRURITUS GENERALISED [None]
